FAERS Safety Report 10749950 (Version 1)
Quarter: 2015Q1

REPORT INFORMATION
  Report Type: Report from Study
  Country: DE (occurrence: DE)
  Receive Date: 20150129
  Receipt Date: 20150129
  Transmission Date: 20150721
  Serious: Yes (Hospitalization)
  Sender: FDA-Public Use
  Company Number: DE-ABBVIE-15P-062-1339724-00

PATIENT
  Age: 77 Year
  Sex: Female

DRUGS (2)
  1. LEVODOPA/CARBIDOPA [Suspect]
     Active Substance: CARBIDOPA\LEVODOPA
     Dosage: MD 5.5ML, CRD 2.8ML/H, ED 1.5ML
     Route: 050
  2. LEVODOPA/CARBIDOPA [Suspect]
     Active Substance: CARBIDOPA\LEVODOPA
     Indication: PARKINSON^S DISEASE
     Route: 050
     Dates: start: 20130809

REACTIONS (2)
  - Hyperkinesia [Unknown]
  - Fungal infection [Unknown]

NARRATIVE: CASE EVENT DATE: 201501
